FAERS Safety Report 17820702 (Version 1)
Quarter: 2020Q2

REPORT INFORMATION
  Report Type: Spontaneous
  Country: CZ (occurrence: US)
  Receive Date: 20200525
  Receipt Date: 20200525
  Transmission Date: 20200714
  Serious: Yes (Other)
  Sender: FDA-Public Use
  Company Number: NVSC2019US047180

PATIENT

DRUGS (9)
  1. TREOSULFAN [Suspect]
     Active Substance: TREOSULFAN
     Indication: EWING^S SARCOMA
     Dosage: UNK
     Route: 065
     Dates: start: 201207
  2. IRINOTECAN [Suspect]
     Active Substance: IRINOTECAN
     Indication: EWING^S SARCOMA
     Dosage: UNK
     Route: 065
     Dates: start: 201509, end: 201604
  3. METFORMIN [Suspect]
     Active Substance: METFORMIN HYDROCHLORIDE
     Indication: EWING^S SARCOMA
     Dosage: UNK
     Route: 065
     Dates: start: 201801, end: 201806
  4. ZOLEDRONIC ACID [Suspect]
     Active Substance: ZOLEDRONIC ACID
     Indication: EWING^S SARCOMA
     Dosage: UNK
     Route: 065
     Dates: start: 201707, end: 201709
  5. MELPHALAN. [Suspect]
     Active Substance: MELPHALAN
     Indication: EWING^S SARCOMA
     Dosage: UNK
     Route: 065
     Dates: start: 201207
  6. TOPOTECAN [Suspect]
     Active Substance: TOPOTECAN HYDROCHLORIDE
     Indication: EWING^S SARCOMA
     Dosage: UNK
     Route: 065
     Dates: start: 201707, end: 201709
  7. PAZOPANIB [Suspect]
     Active Substance: PAZOPANIB
     Indication: EWING^S SARCOMA
     Dosage: UNK
     Route: 065
     Dates: start: 201509, end: 201604
  8. NIVOLUMAB [Suspect]
     Active Substance: NIVOLUMAB
     Indication: EWING^S SARCOMA
     Dosage: UNK (EVERY 2 WEEKS)
     Route: 065
     Dates: start: 201802, end: 201806
  9. CYCLOPHOSPHAMIDE. [Suspect]
     Active Substance: CYCLOPHOSPHAMIDE
     Indication: EWING^S SARCOMA
     Dosage: UNK
     Route: 065
     Dates: start: 201707, end: 201709

REACTIONS (5)
  - Metastases to liver [Unknown]
  - Ewing^s sarcoma [Unknown]
  - Metastases to bone [Unknown]
  - Malignant neoplasm progression [Unknown]
  - Product use in unapproved indication [Unknown]
